FAERS Safety Report 19734576 (Version 1)
Quarter: 2021Q3

REPORT INFORMATION
  Report Type: Spontaneous
  Country: US (occurrence: US)
  Receive Date: 20210823
  Receipt Date: 20210823
  Transmission Date: 20211014
  Serious: No
  Sender: FDA-Public Use
  Company Number: US-BAYER-2021-197067

PATIENT
  Sex: Male

DRUGS (1)
  1. CLARITIN?D 12 HOUR [Suspect]
     Active Substance: LORATADINE\PSEUDOEPHEDRINE SULFATE
     Dosage: 1 TABLET IN MORNING
     Route: 048
     Dates: start: 202108, end: 202108

REACTIONS (2)
  - Insomnia [Unknown]
  - Incorrect dose administered [Unknown]
